FAERS Safety Report 9868678 (Version 1)
Quarter: 2014Q1

REPORT INFORMATION
  Report Type: Report from Study
  Country: GR (occurrence: GR)
  Receive Date: 20140204
  Receipt Date: 20140204
  Transmission Date: 20141002
  Serious: Yes (Hospitalization)
  Sender: FDA-Public Use
  Company Number: GR-ABBVIE-14P-066-1195905-00

PATIENT
  Sex: Female

DRUGS (6)
  1. HUMIRA [Suspect]
     Indication: PSORIATIC ARTHROPATHY
     Dosage: LOADING DOSE WEEK 1
     Route: 058
     Dates: start: 20121101, end: 20121101
  2. HUMIRA [Suspect]
     Indication: PSORIASIS
     Dates: start: 201211
  3. HUMIRA [Suspect]
  4. HUMIRA [Suspect]
  5. UNSPECIFIED TREATMENT [Concomitant]
     Indication: HYPERTENSION
  6. UNSPECIFIED TREATMENT [Concomitant]
     Indication: ASTHMA
     Route: 055

REACTIONS (2)
  - Depression [Not Recovered/Not Resolved]
  - Pain in extremity [Not Recovered/Not Resolved]
